FAERS Safety Report 5389612-9 (Version None)
Quarter: 2007Q3

REPORT INFORMATION
  Report Type: 
  Country: None (occurrence: None)
  Receive Date: 20070717
  Receipt Date: 20070706
  Transmission Date: 20080115
  Serious: Yes (Hospitalization)
  Sender: FDA-Public Use
  Company Number: AR-GILEAD-2007-0012311

PATIENT
  Sex: Female
  Weight: 54 kg

DRUGS (13)
  1. AMBRISENTAN [Suspect]
     Indication: PULMONARY HYPERTENSION
     Route: 048
     Dates: start: 20050518, end: 20070529
  2. WARFARIN SODIUM [Concomitant]
     Indication: ANTIPHOSPHOLIPID SYNDROME
     Route: 048
     Dates: start: 20070608, end: 20070618
  3. WARFARIN SODIUM [Concomitant]
     Route: 048
     Dates: start: 20070608, end: 20070618
  4. WARFARIN SODIUM [Concomitant]
     Route: 048
     Dates: start: 20070327
  5. WARFARIN SODIUM [Concomitant]
     Route: 048
     Dates: start: 20070327
  6. WARFARIN SODIUM [Concomitant]
     Dates: start: 20040401
  7. ASPIRIN [Concomitant]
     Indication: ANTIPHOSPHOLIPID SYNDROME
     Route: 048
     Dates: start: 20040901, end: 20070601
  8. OMEPRAZOLE [Concomitant]
     Indication: GASTRITIS
     Route: 048
     Dates: start: 20040621, end: 20070604
  9. NIFEDIPINE [Concomitant]
     Indication: PULMONARY HYPERTENSION
     Route: 048
     Dates: start: 20070531
  10. NIFEDIPINE [Concomitant]
     Route: 048
     Dates: start: 20050401, end: 20070522
  11. ALPRAZOLAM [Concomitant]
     Indication: STRESS
     Route: 048
     Dates: start: 20050816, end: 20070604
  12. ALPRAZOLAM [Concomitant]
     Indication: INSOMNIA
  13. HEPARIN [Concomitant]
     Route: 058
     Dates: start: 20070619

REACTIONS (2)
  - ABORTION INDUCED [None]
  - EXERCISE TOLERANCE DECREASED [None]
